FAERS Safety Report 4886109-7 (Version None)
Quarter: 2006Q1

REPORT INFORMATION
  Report Type: 
  Country: None (occurrence: None)
  Receive Date: 20060118
  Receipt Date: 20060118
  Transmission Date: 20060701
  Serious: Yes (Death, Life-Threatening)
  Sender: FDA-Public Use
  Company Number: None

PATIENT
  Age: 1 Year
  Sex: Male

DRUGS (9)
  1. RILUTEK [Suspect]
     Indication: SPINAL MUSCULAR ATROPHY
     Dosage: 50 MG  DAILY  PO
     Route: 048
     Dates: start: 20050928, end: 20051115
  2. ALBUTEROL SULFATE AUTOHALER [Concomitant]
  3. UNASYN [Concomitant]
  4. GLYCOPYROLATE [Concomitant]
  5. METHADONE HCL [Concomitant]
  6. POLYETHYLENE GLYCOL [Concomitant]
  7. RANITIDINE [Concomitant]
  8. RILUZOLE [Concomitant]
  9. FENTANYL [Concomitant]

REACTIONS (1)
  - COLLAPSE OF LUNG [None]
